FAERS Safety Report 16962250 (Version 1)
Quarter: 2019Q4

REPORT INFORMATION
  Report Type: Report from Study
  Country: US (occurrence: US)
  Receive Date: 20191025
  Receipt Date: 20191025
  Transmission Date: 20200122
  Serious: Yes (Hospitalization, Other)
  Sender: FDA-Public Use
  Company Number: US-CASPER PHARMA LLC-2019CAS000538

PATIENT
  Age: 58 Year
  Sex: Male

DRUGS (4)
  1. TIGECYCLINE. [Suspect]
     Active Substance: TIGECYCLINE
     Indication: RENAL FAILURE
     Dosage: UNK
     Route: 065
  2. NEOMYCIN, POLYMYXIN, BACITRACIN, HC [Suspect]
     Active Substance: BACITRACIN ZINC\HYDROCORTISONE\NEOMYCIN SULFATE\POLYMYXIN B SULFATE
     Dosage: LOADING DOSE OF 80 MG (1.1 MG/KG) IV EVERY 72 H
     Route: 042
  3. NEOMYCIN, POLYMYXIN, BACITRACIN, HC [Suspect]
     Active Substance: BACITRACIN ZINC\HYDROCORTISONE\NEOMYCIN SULFATE\POLYMYXIN B SULFATE
     Indication: RENAL FAILURE
     Dosage: LOADING DOSE OF 200 MG (2.9 MG/KG) EVERY 72 HOUR
     Route: 042
  4. MEROPENEM. [Suspect]
     Active Substance: MEROPENEM
     Indication: RENAL FAILURE
     Dosage: UNK
     Route: 065

REACTIONS (1)
  - Respiratory arrest [Unknown]
